FAERS Safety Report 10781349 (Version 3)
Quarter: 2015Q1

REPORT INFORMATION
  Report Type: Spontaneous
  Country: US (occurrence: US)
  Receive Date: 20150210
  Receipt Date: 20150324
  Transmission Date: 20150721
  Serious: No
  Sender: FDA-Public Use
  Company Number: US-GLAXOSMITHKLINE-A1080495A

PATIENT
  Age: 55 Year
  Sex: Female

DRUGS (3)
  1. NICORETTE [Suspect]
     Active Substance: NICOTINE
  2. NICORETTE [Suspect]
     Active Substance: NICOTINE
     Indication: SMOKING CESSATION THERAPY
     Route: 002
  3. NICORETTE [Suspect]
     Active Substance: NICOTINE

REACTIONS (6)
  - Product quality issue [Unknown]
  - Dysgeusia [Unknown]
  - Nausea [Unknown]
  - Drug administration error [Unknown]
  - Drug ineffective [Unknown]
  - Malaise [Recovered/Resolved]
